FAERS Safety Report 6392704-9 (Version None)
Quarter: 2009Q4

REPORT INFORMATION
  Report Type: 
  Country: None (occurrence: None)
  Receive Date: 20091007
  Receipt Date: 20090804
  Transmission Date: 20100525
  Serious: No
  Sender: FDA-Public Use
  Company Number: US-ALLERGAN-0910626US

PATIENT
  Age: 55 Year
  Sex: Female

DRUGS (4)
  1. LATISSE [Suspect]
     Indication: DRY EYE
     Dosage: UNK, SINGLE
     Route: 061
  2. LATISSE [Suspect]
     Indication: GROWTH OF EYELASHES
     Dosage: UNK, SINGLE
     Route: 047
  3. RESTASIS [Concomitant]
     Indication: DRY EYE
     Dosage: UNK, UNK
     Route: 047
  4. SYSTANE [Concomitant]
     Indication: DRY EYE
     Dosage: UNK, PRN
     Route: 047

REACTIONS (3)
  - DRY EYE [None]
  - INCORRECT ROUTE OF DRUG ADMINISTRATION [None]
  - OCULAR HYPERAEMIA [None]
